FAERS Safety Report 5143835-2 (Version None)
Quarter: 2006Q4

REPORT INFORMATION
  Report Type: 
  Country: None (occurrence: None)
  Receive Date: 20061106
  Receipt Date: 20061017
  Transmission Date: 20070319
  Serious: Yes (Life-Threatening, Hospitalization)
  Sender: FDA-Public Use
  Company Number: AUWYE260118OCT06

PATIENT
  Age: 49 Year
  Sex: Female

DRUGS (6)
  1. ENBREL [Suspect]
     Indication: RHEUMATOID ARTHRITIS
     Route: 058
     Dates: start: 20060727
  2. NIMODIPINE [Concomitant]
     Indication: BLOOD PRESSURE INCREASED
     Dosage: UNKNOWN
     Route: 048
     Dates: start: 20060101, end: 20060101
  3. PREDNISOLONE [Concomitant]
     Indication: RHEUMATOID ARTHRITIS
     Dosage: 7.5 MG DAILY
     Route: 048
  4. ATACAND [Concomitant]
     Indication: BLOOD PRESSURE INCREASED
  5. OXYCONTIN [Concomitant]
     Indication: ANALGESIC EFFECT
     Dosage: 30 MG DAILY
     Route: 048
  6. DIAZEPAM [Concomitant]
     Indication: SEDATION
     Route: 048

REACTIONS (1)
  - SUBARACHNOID HAEMORRHAGE [None]
